FAERS Safety Report 15122306 (Version 1)
Quarter: 2018Q3

REPORT INFORMATION
  Report Type: Spontaneous
  Country: AE (occurrence: AE)
  Receive Date: 20180709
  Receipt Date: 20180709
  Transmission Date: 20181010
  Serious: Yes (Other)
  Sender: FDA-Public Use
  Company Number: AE-MYLANLABS-2018M1048872

PATIENT
  Age: 12 Year
  Sex: Male

DRUGS (4)
  1. PREDNISOLONE. [Suspect]
     Active Substance: PREDNISOLONE
     Indication: HEART DISEASE CONGENITAL
     Dosage: 1.5 MG/KG/DOSE FOR SIX WEEKS FOLLOWED BY TAPERING DOSE FOR ANOTHER EIGHT WEEKS FOLLOWING WHICH IT...
     Route: 065
  2. WARFARIN [Concomitant]
     Active Substance: WARFARIN
     Indication: HEART DISEASE CONGENITAL
     Route: 065
  3. ENALAPRIL [Suspect]
     Active Substance: ENALAPRIL
     Indication: HEART DISEASE CONGENITAL
     Route: 065
  4. ASPIRIN                            /00002701/ [Concomitant]
     Active Substance: ASPIRIN
     Indication: PRODUCT USED FOR UNKNOWN INDICATION
     Route: 065

REACTIONS (2)
  - Treatment failure [Unknown]
  - No adverse event [Recovered/Resolved]
